FAERS Safety Report 13664490 (Version 1)
Quarter: 2017Q2

REPORT INFORMATION
  Report Type: Spontaneous
  Country: DE (occurrence: DE)
  Receive Date: 20170619
  Receipt Date: 20170619
  Transmission Date: 20170830
  Serious: Yes (Hospitalization, Other)
  Sender: FDA-Public Use
  Company Number: DE-BAYER-2017-111482

PATIENT
  Age: 29 Year
  Sex: Female
  Weight: 62 kg

DRUGS (1)
  1. JAYDESS [Suspect]
     Active Substance: LEVONORGESTREL
     Indication: CONTRACEPTION
     Dosage: 14 MCG/24HR, CONT
     Route: 015
     Dates: start: 20150118, end: 201701

REACTIONS (16)
  - Mood swings [Unknown]
  - Social fear [Unknown]
  - Myalgia [Unknown]
  - Abdominal pain lower [Recovered/Resolved]
  - Panic attack [Unknown]
  - Nervousness [Unknown]
  - Gastric dilatation [Unknown]
  - Acne [Unknown]
  - Hypothyroidism [Unknown]
  - Restlessness [Unknown]
  - Weight increased [Unknown]
  - Disturbance in attention [Unknown]
  - Ovarian cyst [Recovered/Resolved]
  - Hypertrichosis [Recovered/Resolved]
  - Depression [Unknown]
  - Loss of libido [Unknown]

NARRATIVE: CASE EVENT DATE: 20150118
